FAERS Safety Report 15773129 (Version 2)
Quarter: 2024Q2

REPORT INFORMATION
  Report Type: Spontaneous
  Country: US (occurrence: US)
  Receive Date: 20181228
  Receipt Date: 20240423
  Transmission Date: 20240715
  Serious: Yes (Other)
  Sender: FDA-Public Use
  Company Number: US-INDIVIOR INC.-INDV-116639-2018

PATIENT

DRUGS (12)
  1. SUBOXONE [Suspect]
     Active Substance: BUPRENORPHINE HYDROCHLORIDE\NALOXONE HYDROCHLORIDE
     Indication: Drug dependence
     Dosage: HALF OF 8MG FILM THREE TIMES DAILY
     Route: 060
     Dates: start: 201812
  2. NAPROXEN [Suspect]
     Active Substance: NAPROXEN
     Indication: Product used for unknown indication
     Dosage: UNK
     Route: 065
  3. OMEPRAZOLE [Concomitant]
     Active Substance: OMEPRAZOLE
     Indication: Gastrooesophageal reflux disease
     Dosage: 40 MG UNK
     Route: 065
  4. MELOXICAM [Concomitant]
     Active Substance: MELOXICAM
     Indication: Arthritis
     Dosage: 15 MG UNK
     Route: 065
  5. TOBIN [Concomitant]
     Indication: Aortic valve replacement
     Dosage: 10MG/ 6MG, UNK
     Route: 065
  6. MECLIZINE                          /00072801/ [Concomitant]
     Indication: Dizziness
     Dosage: 25MG UNK
     Route: 065
  7. LATANOPROST [Concomitant]
     Active Substance: LATANOPROST
     Indication: Glaucoma
     Dosage: UNK
     Route: 065
  8. FLUOXETINE [Concomitant]
     Active Substance: FLUOXETINE HYDROCHLORIDE
     Indication: Fibromyalgia
     Dosage: 2 SPRAYS EACH NOSTRIL
     Route: 065
  9. HYDRALAZINE [Concomitant]
     Active Substance: HYDRALAZINE HYDROCHLORIDE
     Indication: Anxiety
     Dosage: 25 MG UNK
     Route: 065
  10. CYPROHEPTADINE [Concomitant]
     Active Substance: CYPROHEPTADINE
     Indication: Anxiety
     Dosage: 8 MG, TID
     Route: 065
  11. CYPROHEPTADINE [Concomitant]
     Active Substance: CYPROHEPTADINE
     Dosage: 8 MG, QHS
     Route: 065
  12. PROBIOTICS                         /07325001/ [Concomitant]
     Indication: Antifungal prophylaxis
     Dosage: UNK
     Route: 065

REACTIONS (13)
  - Renal failure [Not Recovered/Not Resolved]
  - Chromaturia [Not Recovered/Not Resolved]
  - Vision blurred [Not Recovered/Not Resolved]
  - Insomnia [Not Recovered/Not Resolved]
  - Hyperhidrosis [Not Recovered/Not Resolved]
  - Panic attack [Not Recovered/Not Resolved]
  - Drug withdrawal syndrome [Not Recovered/Not Resolved]
  - Anxiety [Not Recovered/Not Resolved]
  - Hypertension [Not Recovered/Not Resolved]
  - Palpitations [Not Recovered/Not Resolved]
  - Inappropriate schedule of product administration [Not Recovered/Not Resolved]
  - Wrong technique in product usage process [Not Recovered/Not Resolved]
  - Drug dependence [Not Recovered/Not Resolved]

NARRATIVE: CASE EVENT DATE: 20181201
